FAERS Safety Report 24685685 (Version 1)
Quarter: 2024Q4

REPORT INFORMATION
  Report Type: Spontaneous
  Country: US (occurrence: None)
  Receive Date: 20241127
  Receipt Date: 20241127
  Transmission Date: 20250115
  Serious: Yes (Death)
  Sender: Public
  Company Number: None

PATIENT
  Age: 68 Year
  Sex: Female

DRUGS (1)
  1. AUSTEDO [Suspect]
     Active Substance: DEUTETRABENAZINE
     Indication: Tardive dyskinesia
     Dosage: 6 MG TWICE A DAY ORAL ?
     Route: 048
     Dates: start: 20230922, end: 20241118

REACTIONS (1)
  - Death [None]

NARRATIVE: CASE EVENT DATE: 20241118
